FAERS Safety Report 7508589-0 (Version None)
Quarter: 2011Q2

REPORT INFORMATION
  Report Type: 
  Country: None (occurrence: None)
  Receive Date: 20110527
  Receipt Date: 20100825
  Transmission Date: 20111010
  Serious: No
  Sender: FDA-Public Use
  Company Number: A0878720A

PATIENT
  Sex: Male

DRUGS (2)
  1. UNKNOWN [Concomitant]
  2. FLOLAN [Suspect]
     Indication: ACUTE RESPIRATORY DISTRESS SYNDROME
     Route: 055

REACTIONS (3)
  - INCORRECT ROUTE OF DRUG ADMINISTRATION [None]
  - THERAPEUTIC RESPONSE UNEXPECTED [None]
  - OFF LABEL USE [None]
